FAERS Safety Report 12729170 (Version 2)
Quarter: 2020Q3

REPORT INFORMATION
  Report Type: Report from Study
  Country: TR (occurrence: TR)
  Receive Date: 20160909
  Receipt Date: 20160916
  Transmission Date: 20201104
  Serious: Yes (Hospitalization)
  Sender: FDA-Public Use
  Company Number: TR-JNJFOC-20160902419

PATIENT
  Age: 53 Year
  Sex: Female
  Weight: 52.1 kg

DRUGS (11)
  1. DILTIZEM [Concomitant]
     Indication: HYPOTENSION
     Dosage: ONCE
     Route: 030
     Dates: start: 20160826, end: 20160826
  2. SODIUM CHLORIDE. [Concomitant]
     Active Substance: SODIUM CHLORIDE
     Indication: HYPOTENSION
     Dosage: ONCE
     Route: 042
     Dates: start: 20160826, end: 20160826
  3. PANKREOFLAT SEDANTE [Concomitant]
     Indication: ABDOMINAL PAIN UPPER
     Route: 048
     Dates: start: 20160821
  4. METPAMID [Concomitant]
     Indication: ABDOMINAL PAIN UPPER
     Route: 048
     Dates: start: 20160821
  5. RENNIE DUO [Concomitant]
     Indication: ABDOMINAL PAIN UPPER
     Dates: start: 20160831
  6. IBRUTINIB [Suspect]
     Active Substance: IBRUTINIB
     Route: 048
  7. NIVOLUMAB [Suspect]
     Active Substance: NIVOLUMAB
     Indication: HAEMATOLOGICAL MALIGNANCY
     Route: 042
     Dates: start: 20160816, end: 20160816
  8. IBRUTINIB [Suspect]
     Active Substance: IBRUTINIB
     Indication: HAEMATOLOGICAL MALIGNANCY
     Route: 048
     Dates: start: 20160816, end: 20160830
  9. DICLOFENAC POTASSIUM. [Concomitant]
     Active Substance: DICLOFENAC POTASSIUM
     Indication: ABDOMINAL PAIN UPPER
     Route: 048
     Dates: start: 20160831
  10. BUSCOPAN PLUS [Concomitant]
     Active Substance: ACETAMINOPHEN\BUTYLSCOPOLAMINE BROMIDE
     Indication: ABDOMINAL PAIN UPPER
     Route: 048
     Dates: start: 20160821
  11. ERYTHROCYTES [Concomitant]
     Active Substance: HUMAN RED BLOOD CELL
     Indication: ANAEMIA
     Dosage: 2 UNITS,
     Route: 042
     Dates: start: 20160901, end: 20160901

REACTIONS (2)
  - Lipase increased [Recovering/Resolving]
  - Amylase increased [Recovering/Resolving]

NARRATIVE: CASE EVENT DATE: 20160831
